FAERS Safety Report 11044242 (Version 6)
Quarter: 2015Q2

REPORT INFORMATION
  Report Type: Spontaneous
  Country: US (occurrence: US)
  Receive Date: 20150417
  Receipt Date: 20150624
  Transmission Date: 20150821
  Serious: Yes (Hospitalization, Disabling, Other)
  Sender: FDA-Public Use
  Company Number: US-009507513-1202USA01977

PATIENT
  Sex: Female

DRUGS (2)
  1. ALENDRONATE SODIUM. [Suspect]
     Active Substance: ALENDRONATE SODIUM
     Indication: OSTEOPOROSIS
     Dosage: 70 MG, QW
     Route: 048
     Dates: start: 20070514, end: 20120102
  2. FOSAMAX [Suspect]
     Active Substance: ALENDRONATE SODIUM
     Indication: OSTEOPOROSIS
     Dosage: 70 MG, QW
     Route: 048
     Dates: start: 20021022, end: 20070628

REACTIONS (26)
  - Fall [Unknown]
  - Road traffic accident [Unknown]
  - Osteoarthritis [Unknown]
  - Osteoarthritis [Unknown]
  - Osteonecrosis [Unknown]
  - Eye operation [Unknown]
  - Lumbar spinal stenosis [Unknown]
  - Osteopenia [Unknown]
  - Femur fracture [Not Recovered/Not Resolved]
  - Cardiac operation [Unknown]
  - Arteriosclerosis coronary artery [Unknown]
  - Cataract [Unknown]
  - Rheumatoid arthritis [Unknown]
  - Intervertebral disc degeneration [Unknown]
  - Intramedullary rod insertion [Unknown]
  - Lethargy [Unknown]
  - Hypertension [Unknown]
  - Arrhythmia [Unknown]
  - Hysterectomy [Unknown]
  - Back pain [Unknown]
  - Neuritis [Unknown]
  - Anaemia [Recovering/Resolving]
  - Hyponatraemia [Recovering/Resolving]
  - Dyslipidaemia [Unknown]
  - Hernia [Unknown]
  - Bursitis [Unknown]

NARRATIVE: CASE EVENT DATE: 2002
